FAERS Safety Report 5664187-5 (Version None)
Quarter: 2008Q1

REPORT INFORMATION
  Report Type: 
  Country: None (occurrence: None)
  Receive Date: 20080312
  Receipt Date: 20080228
  Transmission Date: 20080703
  Serious: Yes (Other)
  Sender: FDA-Public Use
  Company Number: 232131J08USA

PATIENT
  Age: 19 Year
  Sex: Female
  Weight: 90.7194 kg

DRUGS (3)
  1. REBIF [Suspect]
     Indication: MULTIPLE SCLEROSIS
     Dosage: 44 MCG, 3 IN 1 WEEKS, SUBCUTANEOUS
     Route: 058
     Dates: start: 20071115
  2. FLEXERIL [Concomitant]
  3. ADVIL [Concomitant]

REACTIONS (1)
  - CONVULSION [None]
